FAERS Safety Report 10166712 (Version 1)
Quarter: 2014Q2

REPORT INFORMATION
  Report Type: Spontaneous
  Country: GB (occurrence: None)
  Receive Date: 20140508
  Receipt Date: 20140508
  Transmission Date: 20141212
  Serious: Yes (Disabling)
  Sender: FDA-Public Use
  Company Number: AUR-APL-2014-05320

PATIENT
  Age: 50 Year
  Sex: Female
  Weight: 88.7 kg

DRUGS (3)
  1. AMOXICILLIN (AMOXICILLIN) [Suspect]
     Indication: PRODUCT USED FOR UNKNOWN INDICATION
  2. LANSOPRAZOLE (LANSOPRAZOLE) [Concomitant]
  3. LEVOTHYROXINE 9LEVOTHYROXINE) [Concomitant]

REACTIONS (3)
  - Rash generalised [None]
  - Rash macular [None]
  - Pruritus generalised [None]
